FAERS Safety Report 8831373 (Version 1)
Quarter: 2012Q4

REPORT INFORMATION
  Report Type: 
  Country: US (occurrence: US)
  Receive Date: 20121008
  Receipt Date: 20121008
  Transmission Date: 20130627
  Serious: Yes (Hospitalization)
  Sender: FDA-Public Use
  Company Number: US-VERTEX PHARMACEUTICAL INC.-AE-2012-005758

PATIENT
  Age: 54 Year
  Sex: Female

DRUGS (3)
  1. VX-950 [Suspect]
     Indication: HEPATITIS C
     Dosage: 750 mg, tid
     Route: 048
     Dates: start: 20120120, end: 20120419
  2. PEGASYS [Suspect]
     Indication: HEPATITIS C
     Dosage: 180 UNK, qw
     Route: 058
     Dates: start: 20120120
  3. RIBAVIRIN [Suspect]
     Indication: HEPATITIS C
     Dosage: 1000 mg, qd
     Route: 048
     Dates: start: 20120120

REACTIONS (6)
  - Appendicitis perforated [Not Recovered/Not Resolved]
  - Upper respiratory tract infection [Not Recovered/Not Resolved]
  - Alopecia [Not Recovered/Not Resolved]
  - Fatigue [Not Recovered/Not Resolved]
  - Rash pruritic [Not Recovered/Not Resolved]
  - Pruritus [Not Recovered/Not Resolved]
